FAERS Safety Report 8421274-6 (Version None)
Quarter: 2012Q2

REPORT INFORMATION
  Report Type: 
  Country: None (occurrence: None)
  Receive Date: 20120608
  Receipt Date: 20120604
  Transmission Date: 20120825
  Serious: Yes (Other)
  Sender: FDA-Public Use
  Company Number: US-BAYER-2012-056090

PATIENT
  Sex: Female

DRUGS (3)
  1. YAZ [Suspect]
     Dosage: UNK
     Dates: start: 20070201
  2. YASMIN [Suspect]
     Dosage: UNK
     Dates: start: 20090301
  3. YASMIN [Suspect]
     Dosage: UNK
     Dates: start: 20050501

REACTIONS (4)
  - PULMONARY EMBOLISM [None]
  - THROMBOSIS [None]
  - INJURY [None]
  - PAIN [None]
